FAERS Safety Report 9522403 (Version 1)
Quarter: 2013Q3

REPORT INFORMATION
  Report Type: Spontaneous
  Country: US (occurrence: None)
  Receive Date: 20130911
  Receipt Date: 20130911
  Transmission Date: 20140515
  Serious: No
  Sender: FDA-Public Use
  Company Number: AEUSA201300130

PATIENT
  Age: 50 Year
  Sex: Male

DRUGS (5)
  1. GAMUNEX-C (10 PCT) [Suspect]
     Indication: IMMUNODEFICIENCY COMMON VARIABLE
     Route: 058
     Dates: start: 20130112
  2. PARACETAMOL [Concomitant]
  3. BENADRYL [Concomitant]
  4. ASTELIN [Concomitant]
  5. XOPENEX [Concomitant]

REACTIONS (6)
  - Headache [None]
  - Arthralgia [None]
  - Fatigue [None]
  - Cough [None]
  - Asthma [None]
  - Dyspnoea [None]
